FAERS Safety Report 11673956 (Version 1)
Quarter: 2015Q4

REPORT INFORMATION
  Report Type: Spontaneous
  Country: US (occurrence: US)
  Receive Date: 20151027
  Receipt Date: 20151027
  Transmission Date: 20160304
  Serious: No
  Sender: FDA-Public Use
  Company Number: US-ELI_LILLY_AND_COMPANY-US201007007308

PATIENT
  Age: 81 Year
  Sex: Female

DRUGS (5)
  1. LOVASTATIN. [Concomitant]
     Active Substance: LOVASTATIN
     Dosage: UNK, DAILY (1/D)
     Route: 065
  2. FORTEO [Suspect]
     Active Substance: TERIPARATIDE
     Indication: OSTEOPOROSIS
     Dosage: 20 UG, DAILY (1/D)
     Dates: start: 200904
  3. MAXZIDE [Concomitant]
     Active Substance: HYDROCHLOROTHIAZIDE\TRIAMTERENE
     Dosage: UNK, DAILY (1/D)
     Route: 065
  4. TENEX [Concomitant]
     Active Substance: GUANFACINE HYDROCHLORIDE
     Dosage: UNK, DAILY (1/D)
     Route: 065
  5. HYTRIN [Concomitant]
     Active Substance: TERAZOSIN HYDROCHLORIDE
     Dosage: UNK, DAILY (1/D)
     Route: 065

REACTIONS (3)
  - Pain [Recovering/Resolving]
  - Rib fracture [Recovering/Resolving]
  - Fall [Recovering/Resolving]

NARRATIVE: CASE EVENT DATE: 201007
